FAERS Safety Report 6686065-5 (Version None)
Quarter: 2010Q2

REPORT INFORMATION
  Report Type: 
  Country: None (occurrence: None)
  Receive Date: 20100419
  Receipt Date: 20100324
  Transmission Date: 20101027
  Serious: Yes (Other)
  Sender: FDA-Public Use
  Company Number: CHPA2010BR05774

PATIENT
  Age: 34 Year
  Sex: Male

DRUGS (5)
  1. NUPERCAINAL (NCH) [Suspect]
     Indication: PENIS DISORDER
     Dosage: 1 OR 2 DF, QD
     Route: 061
     Dates: start: 20090101, end: 20090101
  2. ALPRAZOLAM [Concomitant]
     Indication: DEPRESSION
     Dosage: 0.5 MG, BID
     Route: 048
     Dates: start: 20070101
  3. ALPRAZOLAM [Concomitant]
     Dosage: 1 MG, QHS
     Route: 048
     Dates: start: 20070101
  4. CITALOPRAM HYDROBROMIDE [Concomitant]
     Indication: DEPRESSION
     Dosage: 1 DF, BID
     Dates: start: 20070101
  5. ALUMINUM HYDROXIDE GEL [Concomitant]
     Indication: NEPHROLITHIASIS
     Dosage: 1 DF, QD
     Route: 048
     Dates: start: 20070101

REACTIONS (2)
  - PENIS DISORDER [None]
  - SURGERY [None]
